FAERS Safety Report 10338016 (Version 2)
Quarter: 2014Q3

REPORT INFORMATION
  Report Type: Spontaneous
  Country: US (occurrence: US)
  Receive Date: 20140724
  Receipt Date: 20140724
  Transmission Date: 20150326
  Serious: No
  Sender: FDA-Public Use
  Company Number: US-UNITED THERAPEUTICS-UTC-047406

PATIENT
  Sex: Female

DRUGS (2)
  1. ADCIRCA [Concomitant]
     Active Substance: TADALAFIL
  2. TYVASO [Suspect]
     Active Substance: TREPROSTINIL
     Dosage: 54-72 MICROGRAMS
     Dates: start: 20110115

REACTIONS (4)
  - Flank pain [Unknown]
  - Kidney infection [Unknown]
  - Headache [Unknown]
  - Device malfunction [Unknown]
